FAERS Safety Report 17477636 (Version 1)
Quarter: 2020Q1

REPORT INFORMATION
  Report Type: Spontaneous
  Country: NL (occurrence: FR)
  Receive Date: 20200228
  Receipt Date: 20200228
  Transmission Date: 20200409
  Serious: Yes (Hospitalization)
  Sender: FDA-Public Use
  Company Number: FR-FRESENIUS KABI-FK202001951

PATIENT
  Age: 77 Year
  Sex: Male
  Weight: 63 kg

DRUGS (7)
  1. GEMCITABINE. [Suspect]
     Active Substance: GEMCITABINE
     Route: 041
     Dates: start: 20190314, end: 20190410
  2. ASPARAGINASE [Concomitant]
     Active Substance: ASPARAGINASE
     Indication: DUCTAL ADENOCARCINOMA OF PANCREAS
     Dosage: 100 IU/KILOGRAM
     Route: 041
     Dates: start: 20190314
  3. MORPHINE SULFATE. [Concomitant]
     Active Substance: MORPHINE SULFATE
     Indication: ABDOMINAL PAIN
     Route: 048
     Dates: start: 201802
  4. GEMCITABINE. [Suspect]
     Active Substance: GEMCITABINE
     Indication: DUCTAL ADENOCARCINOMA OF PANCREAS
     Dosage: REDUCED BY 20%
     Route: 041
     Dates: start: 20190425
  5. PACLITAXEL ALBUMIN [Suspect]
     Active Substance: PACLITAXEL
     Route: 041
     Dates: start: 20190314, end: 20190410
  6. MORPHINE SULFATE. [Concomitant]
     Active Substance: MORPHINE SULFATE
     Indication: ABDOMINAL PAIN
     Route: 048
     Dates: start: 201802
  7. PACLITAXEL ALBUMIN [Suspect]
     Active Substance: PACLITAXEL
     Indication: DUCTAL ADENOCARCINOMA OF PANCREAS
     Dosage: REDUCED BY 20%
     Route: 041
     Dates: start: 20190425

REACTIONS (2)
  - Pyrexia [Recovered/Resolved]
  - General physical health deterioration [Recovered/Resolved]

NARRATIVE: CASE EVENT DATE: 20190417
